FAERS Safety Report 12715672 (Version 4)
Quarter: 2016Q4

REPORT INFORMATION
  Report Type: Spontaneous
  Country: EG (occurrence: EG)
  Receive Date: 20160906
  Receipt Date: 20161129
  Transmission Date: 20170207
  Serious: Yes (Death, Hospitalization, Other)
  Sender: FDA-Public Use
  Company Number: EG-ROCHE-1824353

PATIENT
  Age: 10 Year
  Sex: Female
  Weight: 35 kg

DRUGS (1)
  1. ACTEMRA [Suspect]
     Active Substance: TOCILIZUMAB
     Indication: JUVENILE IDIOPATHIC ARTHRITIS
     Route: 042
     Dates: start: 20160818

REACTIONS (21)
  - Pyrexia [Recovering/Resolving]
  - Back pain [Not Recovered/Not Resolved]
  - Rash pustular [Not Recovered/Not Resolved]
  - Vasculitis cerebral [Unknown]
  - Muscle atrophy [Unknown]
  - Acute leukaemia [Unknown]
  - Anaemia [Unknown]
  - Wound infection [Unknown]
  - Sepsis [Unknown]
  - Cardiac arrest [Fatal]
  - Leukopenia [Unknown]
  - Hypotension [Recovering/Resolving]
  - Erythema [Not Recovered/Not Resolved]
  - Pancytopenia [Unknown]
  - Hypertension [Unknown]
  - Back disorder [Recovering/Resolving]
  - Tachycardia [Recovering/Resolving]
  - Pallor [Recovering/Resolving]
  - Back pain [Recovering/Resolving]
  - Bone pain [Recovering/Resolving]
  - Incorrect product storage [Unknown]

NARRATIVE: CASE EVENT DATE: 20160828
